FAERS Safety Report 12717074 (Version 2)
Quarter: 2016Q3

REPORT INFORMATION
  Report Type: Spontaneous
  Country: NL (occurrence: NL)
  Receive Date: 20160906
  Receipt Date: 20160906
  Transmission Date: 20161109
  Serious: Yes (Other)
  Sender: FDA-Public Use
  Company Number: NL-APOTEX-2016AP010936

PATIENT
  Age: 16 Year
  Sex: Male

DRUGS (1)
  1. RISEDRONAATNATRIUM APOTEX WEKELIJKS, FILMOMHULDE TABLETTEN [Suspect]
     Active Substance: RISEDRONATE SODIUM
     Indication: OSTEOGENESIS IMPERFECTA
     Dosage: 35 MG, Q.WK.
     Route: 048
     Dates: start: 2013, end: 2015

REACTIONS (3)
  - Atypical femur fracture [Recovered/Resolved]
  - Pathological fracture [Unknown]
  - Fall [None]

NARRATIVE: CASE EVENT DATE: 2015
